FAERS Safety Report 12843457 (Version 1)
Quarter: 2016Q4

REPORT INFORMATION
  Report Type: Spontaneous
  Country: FR (occurrence: FR)
  Receive Date: 20161013
  Receipt Date: 20161013
  Transmission Date: 20170207
  Serious: Yes (Other)
  Sender: FDA-Public Use
  Company Number: FR-PFIZER INC-2016471679

PATIENT
  Age: 79 Year
  Sex: Female

DRUGS (18)
  1. CORDARONE [Suspect]
     Active Substance: AMIODARONE HYDROCHLORIDE
     Dosage: 200 MG, UNK (ON THURSDAY, FRIDAY, SATURDAY AND SUNDAY)
     Route: 065
  2. DIFFU-K [Concomitant]
     Active Substance: POTASSIUM CHLORIDE
     Dosage: UNK
  3. HYPERIUM [Concomitant]
     Active Substance: RILMENIDINE PHOSPHATE
     Dosage: 2 MG/ DAY
  4. BRICANYL [Concomitant]
     Active Substance: TERBUTALINE SULFATE
     Dosage: UNK
  5. PARACETAMOL [Concomitant]
     Active Substance: ACETAMINOPHEN
     Dosage: UNK UNK, AS NEEDED
  6. INEXIUM [Concomitant]
     Active Substance: ESOMEPRAZOLE
     Dosage: 20 MG/ DAY
  7. FUMAFER [Concomitant]
     Active Substance: FERROUS FUMARATE
     Dosage: UNK
  8. FOLIC ACID. [Concomitant]
     Active Substance: FOLIC ACID
     Dosage: 15 MG/ WEEK
  9. LEVOTHYROX [Concomitant]
     Active Substance: LEVOTHYROXINE
     Dosage: 25 G/ DAY
  10. LASILIX [Concomitant]
     Active Substance: FUROSEMIDE
     Dosage: 60 MG/ DAY (LASILIX RETARD)
  11. LOXEN [Concomitant]
     Active Substance: NICARDIPINE HYDROCHLORIDE
     Dosage: 20 MG/DAY
  12. CORTANCYL [Concomitant]
     Active Substance: PREDNISONE
     Dosage: 4 MG/ DAY
  13. KARDEGIC [Concomitant]
     Active Substance: ASPIRIN LYSINE
     Dosage: 75 MG/ DAY
  14. UVEDOSE [Concomitant]
     Active Substance: CHOLECALCIFEROL
     Dosage: UNK
  15. ERYTHROMYCIN. [Interacting]
     Active Substance: ERYTHROMYCIN
     Dosage: 250 MG, TWICE A DAY
     Route: 048
     Dates: start: 20160723, end: 20160810
  16. METHOTREXATE. [Concomitant]
     Active Substance: METHOTREXATE
     Dosage: 15 MG/WEEK
  17. CACIT D3 [Concomitant]
     Active Substance: CALCIUM\CHOLECALCIFEROL
     Dosage: 1000/ DAY
  18. TAHOR [Interacting]
     Active Substance: ATORVASTATIN CALCIUM
     Dosage: 10 MG/ DAY

REACTIONS (7)
  - Nausea [Unknown]
  - Asthenia [Unknown]
  - Electrocardiogram QT prolonged [Recovered/Resolved]
  - Diarrhoea [Unknown]
  - Vertigo [Recovered/Resolved]
  - Myalgia [Unknown]
  - Drug interaction [Unknown]

NARRATIVE: CASE EVENT DATE: 201607
